FAERS Safety Report 25280316 (Version 1)
Quarter: 2025Q2

REPORT INFORMATION
  Report Type: Spontaneous
  Country: CN (occurrence: CN)
  Receive Date: 20250507
  Receipt Date: 20250507
  Transmission Date: 20250717
  Serious: Yes (Other)
  Sender: BEIGENE
  Company Number: CN-BEIGENE-BGN-2025-007014

PATIENT
  Age: 60 Year
  Weight: 64 kg

DRUGS (8)
  1. TISLELIZUMAB [Suspect]
     Active Substance: TISLELIZUMAB
     Indication: Lung carcinoma cell type unspecified stage IV
     Dosage: 200 MILLIGRAM, Q3WK
  2. TISLELIZUMAB [Suspect]
     Active Substance: TISLELIZUMAB
     Dosage: 200 MILLIGRAM, Q3WK
     Route: 041
  3. TISLELIZUMAB [Suspect]
     Active Substance: TISLELIZUMAB
     Dosage: 200 MILLIGRAM, Q3WK
     Route: 041
  4. TISLELIZUMAB [Suspect]
     Active Substance: TISLELIZUMAB
     Dosage: 200 MILLIGRAM, Q3WK
  5. PACLITAXEL [Suspect]
     Active Substance: PACLITAXEL
     Indication: Lung carcinoma cell type unspecified stage IV
     Dosage: 200 MILLIGRAM,D1/D8
     Route: 041
  6. PACLITAXEL [Suspect]
     Active Substance: PACLITAXEL
     Dosage: 200 MILLIGRAM,D1/D8
  7. NEDAPLATIN [Concomitant]
     Active Substance: NEDAPLATIN
     Indication: Lung carcinoma cell type unspecified stage IV
     Dosage: 120 MILLIGRAM,D2, Q3WK
     Route: 041
  8. NEDAPLATIN [Concomitant]
     Active Substance: NEDAPLATIN
     Dosage: 120 MILLIGRAM,D2, Q3WK

REACTIONS (1)
  - Myelosuppression [Recovering/Resolving]
